FAERS Safety Report 7818860-0 (Version None)
Quarter: 2011Q4

REPORT INFORMATION
  Report Type: 
  Country: None (occurrence: None)
  Receive Date: 20111017
  Receipt Date: 20111017
  Transmission Date: 20120403
  Serious: Yes (Death)
  Sender: FDA-Public Use
  Company Number: None

PATIENT
  Sex: Male
  Weight: 19.1 kg

DRUGS (1)
  1. CHORAL HYDRATE 500 MG/5 ML PHARMACEUTICAL ASSOCIATES INC. [Suspect]
     Indication: SEDATION
     Dosage: 1900 MG ONCE ORALLY
     Route: 048
     Dates: start: 20100422

REACTIONS (1)
  - OXYGEN SATURATION DECREASED [None]
